FAERS Safety Report 4653839-1 (Version None)
Quarter: 2005Q2

REPORT INFORMATION
  Report Type: 
  Country: None (occurrence: None)
  Receive Date: 20050504
  Receipt Date: 20050418
  Transmission Date: 20051028
  Serious: Yes (Hospitalization)
  Sender: FDA-Public Use
  Company Number: 2005BI007011

PATIENT
  Age: 35 Year
  Sex: Male
  Weight: 63.5036 kg

DRUGS (2)
  1. AVONEX [Suspect]
     Indication: MULTIPLE SCLEROSIS
     Dosage: 30 UG; QW; IM
     Route: 030
     Dates: start: 20030204
  2. AVONEX [Suspect]
     Indication: MULTIPLE SCLEROSIS
     Dosage: 30 UG QW IM
     Route: 030

REACTIONS (8)
  - ASTHENIA [None]
  - CONDITION AGGRAVATED [None]
  - DEPRESSION [None]
  - DIFFICULTY IN WALKING [None]
  - DYSARTHRIA [None]
  - FALL [None]
  - INFLUENZA [None]
  - PYREXIA [None]
